FAERS Safety Report 10652616 (Version 1)
Quarter: 2014Q4

REPORT INFORMATION
  Report Type: Spontaneous
  Country: TN (occurrence: TN)
  Receive Date: 20141215
  Receipt Date: 20141215
  Transmission Date: 20150529
  Serious: Yes (Other)
  Sender: FDA-Public Use
  Company Number: TN-WATSON-2014-26387

PATIENT
  Age: 37 Year
  Sex: Male

DRUGS (1)
  1. CLARITHROMYCIN (UNKNOWN) [Suspect]
     Active Substance: CLARITHROMYCIN
     Indication: PHARYNGITIS
     Dosage: 500 MG, BID
     Route: 048

REACTIONS (1)
  - Psoriasis [Recovered/Resolved]
